FAERS Safety Report 6773217-9 (Version None)
Quarter: 2010Q2

REPORT INFORMATION
  Report Type: 
  Country: None (occurrence: None)
  Receive Date: 20100616
  Receipt Date: 20100603
  Transmission Date: 20101027
  Serious: Yes (Hospitalization, Other)
  Sender: FDA-Public Use
  Company Number: NL-GENENTECH-299905

PATIENT
  Sex: Female

DRUGS (2)
  1. RANIBIZUMAB [Suspect]
     Indication: MACULAR DEGENERATION
     Dosage: 0.5 MG, UNKNOWN
     Route: 065
     Dates: start: 20090402
  2. AMIODARONE [Concomitant]
     Indication: DRUG USE FOR UNKNOWN INDICATION

REACTIONS (6)
  - CHOKING [None]
  - CHOROIDAL NEOVASCULARISATION [None]
  - FATIGUE [None]
  - MYOCARDIAL INFARCTION [None]
  - PALLOR [None]
  - RETINAL OEDEMA [None]
